FAERS Safety Report 7808034-1 (Version None)
Quarter: 2011Q4

REPORT INFORMATION
  Report Type: 
  Country: None (occurrence: None)
  Receive Date: 20111011
  Receipt Date: 20110830
  Transmission Date: 20120403
  Serious: Yes (Death)
  Sender: FDA-Public Use
  Company Number: US-ROXANE LABORATORIES, INC.-2011-DE-04920GD

PATIENT
  Age: 48 Year
  Sex: Male

DRUGS (2)
  1. PREDNISONE [Suspect]
     Indication: DERMATOMYOSITIS
     Dosage: 60 MG
  2. PREDNISONE [Suspect]

REACTIONS (2)
  - RESPIRATORY FAILURE [None]
  - PNEUMOCYSTIS JIROVECI PNEUMONIA [None]
